FAERS Safety Report 18888478 (Version 1)
Quarter: 2021Q1

REPORT INFORMATION
  Report Type: Report from Study
  Country: None (occurrence: CA)
  Receive Date: 20210212
  Receipt Date: 20210212
  Transmission Date: 20210420
  Serious: Yes (Hospitalization, Other)
  Sender: FDA-Public Use
  Company Number: CA-ABBVIE-21K-028-3769564-00

PATIENT
  Age: 72 Year
  Sex: Male

DRUGS (1)
  1. HUMIRA [Suspect]
     Active Substance: ADALIMUMAB
     Indication: RHEUMATOID ARTHRITIS
     Route: 058
     Dates: start: 20181126, end: 202011

REACTIONS (5)
  - Fall [Recovered/Resolved]
  - Guillain-Barre syndrome [Unknown]
  - Myocardial infarction [Unknown]
  - Gait inability [Unknown]
  - Synovial cyst [Unknown]

NARRATIVE: CASE EVENT DATE: 20201124
